FAERS Safety Report 16109784 (Version 1)
Quarter: 2019Q1

REPORT INFORMATION
  Report Type: Spontaneous
  Country: US (occurrence: US)
  Receive Date: 20190325
  Receipt Date: 20190325
  Transmission Date: 20190418
  Serious: No
  Sender: FDA-Public Use
  Company Number: US-GLENMARK PHARMACEUTICALS-2019GMK040056

PATIENT

DRUGS (2)
  1. NORETHINDRONE AND ETHINYL ESTRADIOL TABLETS USP, 1 MG/0.005 MG [Suspect]
     Active Substance: ETHINYL ESTRADIOL\NORETHINDRONE
     Indication: HORMONE REPLACEMENT THERAPY
     Dosage: NORMALLY TAKES HALF TABLET DAILY (QD)
     Route: 048
  2. NORETHINDRONE AND ETHINYL ESTRADIOL TABLETS USP, 1 MG/0.005 MG [Suspect]
     Active Substance: ETHINYL ESTRADIOL\NORETHINDRONE
     Dosage: 1 DF, QD (NOW TAKES 1 TABLET EVERYDAY SINCE ITS GETTING CLOSE TO ITS EXPIRY)
     Route: 048

REACTIONS (2)
  - Drug ineffective for unapproved indication [Unknown]
  - Product use issue [Unknown]
